FAERS Safety Report 23663829 (Version 3)
Quarter: 2025Q4

REPORT INFORMATION
  Report Type: Other
  Country: CA (occurrence: CA)
  Receive Date: 20240322
  Receipt Date: 20251030
  Transmission Date: 20260118
  Serious: Yes (Other)
  Sender: APOTEX
  Company Number: CA-APOTEX-2024AP003591

PATIENT
  Age: 45 Year
  Sex: Female

DRUGS (4)
  1. DOXYCYCLINE [Suspect]
     Active Substance: DOXYCYCLINE
     Indication: Staphylococcal infection
     Dosage: UNK
     Route: 065
  2. ENTYVIO [Suspect]
     Active Substance: VEDOLIZUMAB
     Indication: Crohn^s disease
     Dosage: 300 MILLIGRAM
     Route: 042
  3. ENTYVIO [Suspect]
     Active Substance: VEDOLIZUMAB
     Dosage: 300 MILLIGRAM, Q.I.W
     Route: 042
  4. ENTYVIO [Suspect]
     Active Substance: VEDOLIZUMAB
     Dosage: 1 EVERY 2 WEEKS
     Route: 058

REACTIONS (24)
  - Anal incontinence [Recovering/Resolving]
  - Anastomotic ulcer [Recovering/Resolving]
  - Enteritis [Recovering/Resolving]
  - Flatulence [Recovering/Resolving]
  - Frequent bowel movements [Recovering/Resolving]
  - Gastrointestinal anastomotic complication [Recovering/Resolving]
  - Illness [Recovering/Resolving]
  - Off label use [Recovering/Resolving]
  - Staphylococcal infection [Recovering/Resolving]
  - Gastrointestinal microorganism overgrowth [Recovering/Resolving]
  - Defaecation urgency [Recovering/Resolving]
  - Abdominal distension [Recovering/Resolving]
  - Anal fissure [Recovering/Resolving]
  - Gastrointestinal microorganism overgrowth [Recovering/Resolving]
  - Abdominal pain [Recovering/Resolving]
  - Abdominal pain lower [Recovering/Resolving]
  - Eye inflammation [Recovering/Resolving]
  - Impaired work ability [Recovering/Resolving]
  - Mouth ulceration [Recovering/Resolving]
  - Social problem [Recovering/Resolving]
  - Arthralgia [Recovering/Resolving]
  - Therapeutic response decreased [Recovering/Resolving]
  - Therapeutic reaction time decreased [Recovering/Resolving]
  - Diarrhoea [Recovering/Resolving]
